FAERS Safety Report 15952415 (Version 1)
Quarter: 2019Q1

REPORT INFORMATION
  Report Type: Spontaneous
  Country: US (occurrence: US)
  Receive Date: 20190212
  Receipt Date: 20190212
  Transmission Date: 20190417
  Serious: No
  Sender: FDA-Public Use
  Company Number: US-PFIZER INC-2019055736

PATIENT
  Age: 70 Year
  Sex: Female
  Weight: 91.63 kg

DRUGS (1)
  1. LYRICA [Suspect]
     Active Substance: PREGABALIN
     Indication: HYPOAESTHESIA
     Dosage: 150 MG, 1X/DAY [DAILY AT NIGHT]
     Route: 048
     Dates: start: 201807

REACTIONS (1)
  - Limb discomfort [Unknown]
